FAERS Safety Report 8290299-6 (Version None)
Quarter: 2012Q2

REPORT INFORMATION
  Report Type: 
  Country: None (occurrence: None)
  Receive Date: 20120417
  Receipt Date: 20120411
  Transmission Date: 20120825
  Serious: Yes (Hospitalization)
  Sender: FDA-Public Use
  Company Number: PHHY2012CA023126

PATIENT
  Sex: Male

DRUGS (1)
  1. AFINITOR [Suspect]
     Indication: PANCREATIC NEUROENDOCRINE TUMOUR METASTATIC
     Dosage: 10 MG DAILY
     Route: 048
     Dates: start: 20080201, end: 20120307

REACTIONS (10)
  - DYSGEUSIA [None]
  - WEIGHT DECREASED [None]
  - ABDOMINAL PAIN UPPER [None]
  - NEOPLASM PROGRESSION [None]
  - MALAISE [None]
  - BACK PAIN [None]
  - VOMITING [None]
  - NEOPLASM MALIGNANT [None]
  - LUNG DISORDER [None]
  - TONGUE DISORDER [None]
